FAERS Safety Report 10244566 (Version 3)
Quarter: 2015Q2

REPORT INFORMATION
  Report Type: Spontaneous
  Country: US (occurrence: US)
  Receive Date: 20140618
  Receipt Date: 20150501
  Transmission Date: 20150821
  Serious: Yes (Other)
  Sender: FDA-Public Use
  Company Number: US-GLAXOSMITHKLINE-A1068381A

PATIENT
  Age: 53 Year
  Sex: Female

DRUGS (8)
  1. ADVAIR HFA [Suspect]
     Active Substance: FLUTICASONE PROPIONATE\SALMETEROL XINAFOATE
     Dosage: 1 PUFF(S), BID
  2. ADVAIR HFA [Suspect]
     Active Substance: FLUTICASONE PROPIONATE\SALMETEROL XINAFOATE
     Indication: ASTHMA
     Dosage: 1 PUFF(S), BID
     Route: 065
     Dates: start: 20120608
  3. LAMICTAL [Suspect]
     Active Substance: LAMOTRIGINE
     Indication: SEIZURE
     Dosage: 150 MG, QD
     Route: 048
     Dates: start: 2009
  4. FLONASE [Suspect]
     Active Substance: FLUTICASONE PROPIONATE
     Indication: ASTHMA
     Route: 045
     Dates: end: 2012
  5. LAMICTAL [Suspect]
     Active Substance: LAMOTRIGINE
     Indication: BIPOLAR DISORDER
     Dosage: 200 MG, UNK
     Dates: start: 201206
  6. ASPIRIN. [Concomitant]
     Active Substance: ASPIRIN
  7. VERAMYST [Suspect]
     Active Substance: FLUTICASONE FUROATE
     Indication: ASTHMA
     Dosage: UNKNOWN STRENGTH, ONCE PER DAY
     Route: 045
     Dates: start: 20120608
  8. RANITIDINE [Concomitant]
     Active Substance: RANITIDINE\RANITIDINE HYDROCHLORIDE

REACTIONS (8)
  - Memory impairment [Not Recovered/Not Resolved]
  - Stress [Unknown]
  - Coeliac disease [Not Recovered/Not Resolved]
  - Headache [Recovered/Resolved]
  - Thinking abnormal [Unknown]
  - Neck injury [Not Recovered/Not Resolved]
  - Lactose intolerance [Not Recovered/Not Resolved]
  - Road traffic accident [Recovered/Resolved]

NARRATIVE: CASE EVENT DATE: 2012
